FAERS Safety Report 5511602-3 (Version None)
Quarter: 2007Q4

REPORT INFORMATION
  Report Type: 
  Country: None (occurrence: None)
  Receive Date: 20071109
  Receipt Date: 20071101
  Transmission Date: 20080405
  Serious: Yes (Death)
  Sender: FDA-Public Use
  Company Number: US-PURDUE-USA_2007_0029028

PATIENT
  Age: 34 Year
  Sex: Male
  Weight: 91 kg

DRUGS (1)
  1. OXYCONTIN [Suspect]
     Indication: BACK PAIN
     Dosage: UNK MG, SEE TEXT
     Route: 048
     Dates: start: 20000101

REACTIONS (12)
  - ARRHYTHMIA [None]
  - CARDIAC DISORDER [None]
  - DERMOID CYST [None]
  - HEPATIC CIRRHOSIS [None]
  - HEPATOMEGALY [None]
  - LEFT VENTRICULAR HYPERTROPHY [None]
  - MYOCARDIAL FIBROSIS [None]
  - REGURGITATION [None]
  - RESUSCITATION [None]
  - RIB FRACTURE [None]
  - STERNAL FRACTURE [None]
  - VISCERAL CONGESTION [None]
